FAERS Safety Report 5147894-2 (Version None)
Quarter: 2006Q4

REPORT INFORMATION
  Report Type: 
  Country: None (occurrence: None)
  Receive Date: 20061110
  Receipt Date: 20061102
  Transmission Date: 20070319
  Serious: Yes (Other)
  Sender: FDA-Public Use
  Company Number: DE-JNJFOC-20061100686

PATIENT
  Sex: Male
  Weight: 65 kg

DRUGS (5)
  1. RISPERDAL [Suspect]
     Indication: ANXIETY
     Route: 048
  2. RISPERDAL [Suspect]
     Indication: RESTLESSNESS
     Route: 048
  3. LORZAAR [Concomitant]
     Indication: HYPERTENSION
     Dosage: TAKEN FOR YEARS
     Route: 048
  4. BISOPROLOL COMP [Concomitant]
     Indication: HYPERTENSION
     Route: 048
  5. CORINFAR [Concomitant]
     Indication: HYPERTENSION
     Dosage: TAKEN FOR YEARS
     Route: 048

REACTIONS (1)
  - VASCULITIS [None]
